FAERS Safety Report 20848605 (Version 1)
Quarter: 2022Q2

REPORT INFORMATION
  Report Type: Spontaneous
  Country: US (occurrence: None)
  Receive Date: 20220518
  Receipt Date: 20220518
  Transmission Date: 20220721
  Serious: Yes (Hospitalization, Other)
  Sender: FDA-Public Use
  Company Number: None

PATIENT
  Age: 40 Year
  Sex: Male

DRUGS (1)
  1. CAPECITABINE [Suspect]
     Active Substance: CAPECITABINE
     Indication: Rectal cancer
     Dosage: FREQUENCY : TWICE A DAY;?
     Route: 048
     Dates: start: 202204

REACTIONS (8)
  - Nausea [None]
  - Pain [None]
  - Fall [None]
  - Balance disorder [None]
  - Tumour haemorrhage [None]
  - Dysstasia [None]
  - Product dose omission in error [None]
  - Infection [None]

NARRATIVE: CASE EVENT DATE: 20220510
